FAERS Safety Report 8270153-6 (Version None)
Quarter: 2012Q2

REPORT INFORMATION
  Report Type: 
  Country: None (occurrence: None)
  Receive Date: 20120410
  Receipt Date: 20120404
  Transmission Date: 20120825
  Serious: Yes (Congenital Anomaly)
  Sender: FDA-Public Use
  Company Number: PHHY2011AU103558

PATIENT
  Sex: Female

DRUGS (2)
  1. CARBAMAZEPINE [Suspect]
     Dosage: MATERNAL DOSE: 800 MG DAILY
     Route: 064
  2. CARBAMAZEPINE [Suspect]
     Indication: EPILEPSY
     Dosage: UNK UKN, UNK

REACTIONS (2)
  - KIDNEY DUPLEX [None]
  - FOETAL EXPOSURE DURING PREGNANCY [None]
